FAERS Safety Report 8965844 (Version 1)
Quarter: 2012Q4

REPORT INFORMATION
  Report Type: 
  Country: US (occurrence: US)
  Receive Date: 20121217
  Receipt Date: 20121217
  Transmission Date: 20130627
  Serious: Yes (Hospitalization, Other)
  Sender: FDA-Public Use
  Company Number: US-AMGEN-USASP2012079327

PATIENT
  Age: 38 Year
  Sex: Male

DRUGS (10)
  1. EPOGEN [Suspect]
     Indication: PRODUCT USED FOR UNKNOWN INDICATION
     Dosage: UNK
  2. B12                                /00056201/ [Concomitant]
     Dosage: UNK
  3. FOLATE [Concomitant]
     Dosage: UNK
  4. COUMADIN                           /00014802/ [Concomitant]
     Dosage: UNK UNK, qd
  5. PREDNISONE                         /00044702/ [Concomitant]
     Dosage: 10 mg, qd
  6. COREG [Concomitant]
     Dosage: UNK
  7. AMLODIPINE [Concomitant]
     Dosage: UNK
  8. NEXIUM                             /01479302/ [Concomitant]
     Dosage: UNK
  9. MYFORTIC [Concomitant]
     Dosage: 750 mg, bid
  10. RAPAMUNE [Concomitant]
     Dosage: 2 mg, qd

REACTIONS (3)
  - Muscular weakness [Unknown]
  - Dyspnoea [Unknown]
  - Anaemia [Unknown]
